FAERS Safety Report 4298765-5 (Version None)
Quarter: 2004Q1

REPORT INFORMATION
  Report Type: 
  Country: None (occurrence: None)
  Receive Date: 20040126
  Receipt Date: 20030911
  Transmission Date: 20041129
  Serious: No
  Sender: FDA-Public Use
  Company Number: USA030946987

PATIENT
  Age: 41 Year
  Sex: Male

DRUGS (5)
  1. STRATTERA [Suspect]
     Dosage: 60 MG/DAY
     Dates: start: 20030701
  2. SEROQUEL [Concomitant]
  3. XANAX [Concomitant]
  4. LEXAPRO [Concomitant]
  5. NEURONTIN [Concomitant]

REACTIONS (2)
  - DISTURBANCE IN ATTENTION [None]
  - DRUG INEFFECTIVE [None]
